FAERS Safety Report 15953982 (Version 1)
Quarter: 2019Q1

REPORT INFORMATION
  Report Type: Spontaneous
  Country: US (occurrence: US)
  Receive Date: 20190212
  Receipt Date: 20190212
  Transmission Date: 20190417
  Serious: No
  Sender: FDA-Public Use
  Company Number: US-GLAXOSMITHKLINE-US2019GSK017800

PATIENT

DRUGS (2)
  1. BUPROPION. [Suspect]
     Active Substance: BUPROPION
  2. ALBUTEROL. [Suspect]
     Active Substance: ALBUTEROL

REACTIONS (3)
  - Anxiety [Unknown]
  - Drug hypersensitivity [Unknown]
  - Tremor [Unknown]
